FAERS Safety Report 18014325 (Version 1)
Quarter: 2020Q3

REPORT INFORMATION
  Report Type: Spontaneous
  Country: US (occurrence: US)
  Receive Date: 20200713
  Receipt Date: 20200713
  Transmission Date: 20201103
  Serious: No
  Sender: FDA-Public Use
  Company Number: None

PATIENT
  Sex: Female
  Weight: 63 kg

DRUGS (1)
  1. BLUMEN ADVANCED INSTANT HAND SANITIZER CLEAR [Suspect]
     Active Substance: ALCOHOL
     Indication: ANTIBIOTIC PROPHYLAXIS
     Route: 061

REACTIONS (6)
  - Arthralgia [None]
  - Abdominal pain upper [None]
  - Fatigue [None]
  - Headache [None]
  - Vision blurred [None]
  - Myalgia [None]
